FAERS Safety Report 7913291 (Version 2)
Quarter: 2012Q4

REPORT INFORMATION
  Report Type: Spontaneous
  Country: US (occurrence: None)
  Receive Date: 20110404
  Receipt Date: 20120913
  Transmission Date: 20130627
  Serious: Yes (Other)
  Sender: FDA-Public Use
  Company Number: 2011MA002605

PATIENT
  Sex: Female
  Weight: 99.34 kg

DRUGS (14)
  1. METOCLOPRAMIDE [Suspect]
     Indication: NAUSEA
     Dates: start: 20090402, end: 20100208
  2. METOCLOPRAMIDE [Suspect]
     Indication: VOMITING
     Dates: start: 20090402, end: 20100208
  3. PRILOSEC [Concomitant]
  4. HYDROXYZINE [Concomitant]
  5. POTASSIUM [Concomitant]
  6. LISINOPRIL [Concomitant]
  7. HCTZ [Concomitant]
  8. PROMETHAZINE W/CODEINE [Concomitant]
  9. IBUPROFEN [Concomitant]
  10. OMEPRAZOLE [Concomitant]
  11. EPIPEN [Concomitant]
  12. CLONIDINE [Concomitant]
  13. CIPROFLOXACIN [Concomitant]
  14. CYCLOBENZAPRINE [Concomitant]

REACTIONS (9)
  - Tardive dyskinesia [None]
  - Injury [None]
  - Economic problem [None]
  - Emotional disorder [None]
  - Ill-defined disorder [None]
  - Family stress [None]
  - Abasia [None]
  - Nausea [None]
  - Vomiting [None]
